FAERS Safety Report 19811644 (Version 1)
Quarter: 2021Q3

REPORT INFORMATION
  Report Type: Report from Study
  Country: CA (occurrence: CA)
  Receive Date: 20210910
  Receipt Date: 20210910
  Transmission Date: 20211014
  Serious: Yes (Hospitalization)
  Sender: FDA-Public Use
  Company Number: CA-CHIESI-2021CHF04387

PATIENT
  Sex: Female
  Weight: 62 kg

DRUGS (4)
  1. DEFERIPRONE [Suspect]
     Active Substance: DEFERIPRONE
     Dosage: 2000 MILLIGRAM, TID
     Route: 048
     Dates: start: 20190412
  2. DEFERIPRONE [Suspect]
     Active Substance: DEFERIPRONE
     Indication: MYELODYSPLASTIC SYNDROME
     Dosage: 500 MILLIGRAM, TID
     Route: 048
     Dates: start: 20170607
  3. DEFERIPRONE [Suspect]
     Active Substance: DEFERIPRONE
     Dosage: 1000 MILLIGRAM, TID
     Route: 048
     Dates: start: 20170901
  4. DEFERIPRONE [Suspect]
     Active Substance: DEFERIPRONE
     Dosage: 1500 MILLIGRAM, TID
     Route: 048
     Dates: start: 20171222

REACTIONS (2)
  - Cholelithiasis [Recovering/Resolving]
  - Cholecystitis infective [Recovering/Resolving]
